FAERS Safety Report 16859085 (Version 1)
Quarter: 2019Q3

REPORT INFORMATION
  Report Type: Other
  Country: US (occurrence: US)
  Receive Date: 20190926
  Receipt Date: 20190926
  Transmission Date: 20191005
  Serious: Yes (Death)
  Sender: FDA-Public Use
  Company Number: US-VERASTEM-2019-00043

PATIENT

DRUGS (6)
  1. ZOFRAN [Concomitant]
     Active Substance: ONDANSETRON HYDROCHLORIDE
     Indication: NAUSEA
     Dosage: UNK
  2. RITUXAN [Concomitant]
     Active Substance: RITUXIMAB
     Indication: B-CELL LYMPHOMA
     Dosage: UNK
     Route: 042
  3. COPIKTRA [Suspect]
     Active Substance: DUVELISIB
     Indication: B-CELL LYMPHOMA
     Dosage: 15 MG, BID
     Route: 048
     Dates: start: 20190315, end: 20190327
  4. VINBLASTINE [Concomitant]
     Active Substance: VINBLASTINE
     Indication: B-CELL LYMPHOMA
     Dosage: UNK
     Route: 042
  5. GAZYVA [Concomitant]
     Active Substance: OBINUTUZUMAB
     Indication: B-CELL LYMPHOMA
     Dosage: UNK
     Route: 042
  6. RETACRIT [Concomitant]
     Active Substance: EPOETIN ALFA-EPBX
     Indication: PRODUCT USED FOR UNKNOWN INDICATION
     Dosage: UNK

REACTIONS (14)
  - Lethargy [Unknown]
  - Sepsis [Fatal]
  - Stomatitis [Not Recovered/Not Resolved]
  - Fall [Recovered/Resolved]
  - Musculoskeletal pain [Unknown]
  - Diarrhoea [Unknown]
  - Respiratory failure [Fatal]
  - Nausea [Unknown]
  - Pneumonia [Fatal]
  - Malignant neoplasm progression [Not Recovered/Not Resolved]
  - Skin laceration [Not Recovered/Not Resolved]
  - Asthenia [Unknown]
  - Neck pain [Unknown]
  - Prescribed underdose [None]

NARRATIVE: CASE EVENT DATE: 201903
